FAERS Safety Report 8923461 (Version 1)
Quarter: 2012Q4

REPORT INFORMATION
  Report Type: 
  Country: US (occurrence: US)
  Receive Date: 20121124
  Receipt Date: 20121124
  Transmission Date: 20130627
  Serious: Yes (Other)
  Sender: FDA-Public Use
  Company Number: US-BAYER-2012-120613

PATIENT
  Age: 53 Year
  Sex: Female
  Weight: 54 kg

DRUGS (3)
  1. BAYER ASPIRIN REGIMEN ADULT LOW STRENGTH [Suspect]
     Dosage: every other night
  2. PLAVIX [Suspect]
     Indication: MITRAL VALVE PROLAPSE
     Dosage: 75 mg, QD
     Route: 048
  3. TYLENOL [Suspect]

REACTIONS (7)
  - Pharyngitis streptococcal [Recovered/Resolved]
  - Anaemia [None]
  - Increased tendency to bruise [None]
  - Infection [None]
  - Pyrexia [None]
  - Chills [None]
  - Abdominal discomfort [None]
